FAERS Safety Report 13205029 (Version 1)
Quarter: 2017Q1

REPORT INFORMATION
  Report Type: Spontaneous
  Country: FR (occurrence: FR)
  Receive Date: 20170209
  Receipt Date: 20170209
  Transmission Date: 20170428
  Serious: Yes (Other)
  Sender: FDA-Public Use
  Company Number: FR-TELIGENT, INC-IGIL20170041

PATIENT
  Age: 70 Year
  Sex: Male

DRUGS (6)
  1. POLARAMINE [Concomitant]
     Active Substance: DEXCHLORPHENIRAMINE MALEATE
     Indication: PREMEDICATION
     Route: 065
  2. SOLU-MEDROL [Suspect]
     Active Substance: METHYLPREDNISOLONE SODIUM SUCCINATE
     Indication: PREMEDICATION
     Route: 042
     Dates: start: 20170109, end: 20170109
  3. PHENERGAN [Suspect]
     Active Substance: PROMETHAZINE HYDROCHLORIDE
     Indication: PREMEDICATION
     Route: 042
     Dates: start: 20170109, end: 20170109
  4. CETUXIMAB. [Concomitant]
     Active Substance: CETUXIMAB
     Indication: CHEMOTHERAPY
     Route: 065
  5. RANITIDINE HYDROCHLORIDE. [Suspect]
     Active Substance: RANITIDINE HYDROCHLORIDE
     Indication: PREMEDICATION
     Route: 042
     Dates: start: 20170109, end: 20170109
  6. CARBOPLATINE [Concomitant]
     Active Substance: CARBOPLATIN
     Indication: CHEMOTHERAPY
     Route: 065

REACTIONS (3)
  - Apnoea [Recovered/Resolved]
  - Somnolence [Recovered/Resolved]
  - Nausea [Recovered/Resolved]

NARRATIVE: CASE EVENT DATE: 20170109
